FAERS Safety Report 4559347-0 (Version None)
Quarter: 2005Q1

REPORT INFORMATION
  Report Type: 
  Country: None (occurrence: None)
  Receive Date: 20050124
  Receipt Date: 20050114
  Transmission Date: 20050727
  Serious: Yes (Other)
  Sender: FDA-Public Use
  Company Number: DE-BRISTOL-MYERS SQUIBB COMPANY-12826798

PATIENT
  Sex: Female

DRUGS (2)
  1. APROVEL TABS [Suspect]
     Route: 048
  2. COAPROVEL [Suspect]
     Route: 048

REACTIONS (3)
  - ABASIA [None]
  - ANURIA [None]
  - MYALGIA [None]
